FAERS Safety Report 7083650-6 (Version None)
Quarter: 2010Q4

REPORT INFORMATION
  Report Type: 
  Country: None (occurrence: None)
  Receive Date: 20101104
  Receipt Date: 20101025
  Transmission Date: 20110411
  Serious: Yes (Hospitalization)
  Sender: FDA-Public Use
  Company Number: IT-NAPPMUNDI-GBR-2010-0007263

PATIENT
  Sex: Male

DRUGS (9)
  1. OXYCONTIN [Suspect]
     Indication: HERPES SIMPLEX
     Dosage: 5 MG, DAILY
     Route: 048
     Dates: start: 20101012, end: 20101016
  2. LYRICA [Suspect]
     Indication: HERPES SIMPLEX
     Dosage: 75 MG, DAILY
     Route: 048
     Dates: start: 20101012, end: 20101016
  3. CARDIOASPIRIN [Concomitant]
     Dosage: 100 MG, UNK
     Route: 065
  4. MONOKET [Concomitant]
     Dosage: 20 MG, UNK
     Route: 065
  5. TICLOPIDINE HCL [Concomitant]
     Dosage: 250 MG, UNK
     Route: 065
  6. DILATREND [Concomitant]
     Dosage: 6.25 MG, UNK
     Route: 065
  7. COVERSYL                           /00790702/ [Concomitant]
     Dosage: 2.5 MG, UNK
     Route: 065
  8. EUTIROX [Concomitant]
     Dosage: 20 MG, UNK
     Route: 065
  9. TORVAST [Concomitant]
     Dosage: 20 MG, UNK
     Route: 065

REACTIONS (2)
  - LOSS OF CONSCIOUSNESS [None]
  - SOMNOLENCE [None]
